FAERS Safety Report 10970296 (Version 1)
Quarter: 2015Q1

REPORT INFORMATION
  Report Type: Spontaneous
  Country: US (occurrence: None)
  Receive Date: 20150330
  Receipt Date: 20150330
  Transmission Date: 20150721
  Serious: No
  Sender: FDA-Public Use
  Company Number: None

PATIENT
  Age: 68 Year
  Sex: Male
  Weight: 85.5 kg

DRUGS (1)
  1. PACLITAXEL. [Suspect]
     Active Substance: PACLITAXEL
     Indication: NEOPLASM MALIGNANT
     Route: 042
     Dates: start: 20150211, end: 20150324

REACTIONS (7)
  - Throat tightness [None]
  - Obstructive airways disorder [None]
  - Respiratory distress [None]
  - Cough [None]
  - Wheezing [None]
  - Stridor [None]
  - Dyspnoea [None]

NARRATIVE: CASE EVENT DATE: 20150324
